FAERS Safety Report 10308628 (Version 1)
Quarter: 2014Q3

REPORT INFORMATION
  Report Type: Spontaneous
  Country: ES (occurrence: ES)
  Receive Date: 20140716
  Receipt Date: 20140716
  Transmission Date: 20150326
  Serious: Yes (Life-Threatening, Hospitalization)
  Sender: FDA-Public Use
  Company Number: PHHY2014ES085613

PATIENT
  Age: 83 Year
  Sex: Female

DRUGS (6)
  1. BISOPROLOL [Concomitant]
     Active Substance: BISOPROLOL
     Indication: CARDIAC FAILURE
     Dosage: UNK UKN, UNK
     Route: 048
  2. ATORVASTATIN [Concomitant]
     Active Substance: ATORVASTATIN
     Indication: HYPERLIPIDAEMIA
     Dosage: UNK UKN, UNK
     Route: 048
  3. LEVOFLOXACIN [Interacting]
     Active Substance: LEVOFLOXACIN
     Indication: BRONCHITIS
     Dosage: 10 DF (250/ 12 HOUR)
     Route: 048
     Dates: start: 20140131, end: 20140203
  4. SINTROM [Suspect]
     Active Substance: ACENOCOUMAROL
     Indication: MEDICAL DEVICE COMPLICATION
     Dosage: UNK UKN, UNK
     Route: 048
     Dates: start: 20100512
  5. NOVOMIX [Concomitant]
     Active Substance: INSULIN ASPART
     Indication: DIABETES MELLITUS
     Dosage: UNK UKN, UNK
     Route: 058
  6. ALOPURINOL [Concomitant]
     Active Substance: ALLOPURINOL
     Indication: HYPERURICAEMIA
     Dosage: UNK UKN, UNK
     Route: 048

REACTIONS (3)
  - International normalised ratio increased [Recovered/Resolved]
  - Medication error [Recovered/Resolved]
  - Epistaxis [Recovered/Resolved]

NARRATIVE: CASE EVENT DATE: 20140131
